FAERS Safety Report 10178840 (Version 1)
Quarter: 2014Q2

REPORT INFORMATION
  Report Type: Spontaneous
  Country: US (occurrence: US)
  Receive Date: 20140519
  Receipt Date: 20140519
  Transmission Date: 20141212
  Serious: No
  Sender: FDA-Public Use
  Company Number: US-BIOGENIDEC-2014BI034084

PATIENT
  Sex: 0

DRUGS (1)
  1. TECFIDERA [Suspect]
     Indication: MULTIPLE SCLEROSIS
     Route: 048
     Dates: start: 20130831

REACTIONS (12)
  - Nephrolithiasis [Recovered/Resolved]
  - Decreased appetite [Unknown]
  - Weight decreased [Unknown]
  - Pain in extremity [Unknown]
  - Ear discomfort [Unknown]
  - Chills [Unknown]
  - Drug withdrawal syndrome [Unknown]
  - Visual impairment [Unknown]
  - Facial pain [Unknown]
  - Fibromyalgia [Unknown]
  - Arthralgia [Unknown]
  - Erythema [Unknown]
